FAERS Safety Report 5609633-8 (Version None)
Quarter: 2008Q1

REPORT INFORMATION
  Report Type: 
  Country: None (occurrence: None)
  Receive Date: 20080131
  Receipt Date: 20080125
  Transmission Date: 20080703
  Serious: Yes (Hospitalization)
  Sender: FDA-Public Use
  Company Number: A0706443A

PATIENT
  Age: 69 Year
  Sex: Female
  Weight: 58 kg

DRUGS (1)
  1. SERETIDE [Suspect]
     Indication: BRONCHITIS
     Route: 055
     Dates: start: 20071123, end: 20080113

REACTIONS (5)
  - DIARRHOEA [None]
  - DRUG INEFFECTIVE [None]
  - HEADACHE [None]
  - HYPERTENSION [None]
  - RETCHING [None]
